FAERS Safety Report 7130000-2 (Version None)
Quarter: 2010Q4

REPORT INFORMATION
  Report Type: 
  Country: None (occurrence: None)
  Receive Date: 20101201
  Receipt Date: 20101122
  Transmission Date: 20110411
  Serious: Yes (Hospitalization)
  Sender: FDA-Public Use
  Company Number: US-BIOGENIDEC-2010BI006679

PATIENT
  Age: 48 Year
  Sex: Female

DRUGS (8)
  1. TYSABRI [Suspect]
     Indication: MULTIPLE SCLEROSIS
     Route: 042
     Dates: start: 20090311
  2. BACLOFEN [Concomitant]
     Route: 048
  3. DEPAKOTE [Concomitant]
     Route: 048
  4. FOSAMAX [Concomitant]
     Route: 048
  5. OXYBUTYNIN [Concomitant]
     Route: 048
  6. ONDANSETRON [Concomitant]
     Route: 048
  7. VANCOMYCIN [Concomitant]
     Route: 042
  8. GABAPENTIN [Concomitant]

REACTIONS (1)
  - OSTEOMYELITIS [None]
